FAERS Safety Report 4284537-4 (Version None)
Quarter: 2004Q1

REPORT INFORMATION
  Report Type: 
  Country: None (occurrence: None)
  Receive Date: 20040130
  Receipt Date: 20040113
  Transmission Date: 20041129
  Serious: Yes (Hospitalization)
  Sender: FDA-Public Use
  Company Number: N134750

PATIENT
  Age: 84 Year
  Sex: Male

DRUGS (13)
  1. PLAVIX [Suspect]
     Dosage: 300 MG ONCE THEN 75 MG/D
     Route: 048
     Dates: start: 20010208, end: 20010209
  2. ACETYLSALICYLIC ACID SRT [Suspect]
     Dosage: 325 MG
     Route: 048
     Dates: start: 20010204
  3. METHYLPREDNISOLONE [Suspect]
     Dosage: 250 MG
     Dates: start: 20010208, end: 20010209
  4. VIOXX [Suspect]
     Dosage: 25 MG
     Route: 048
     Dates: start: 20010207, end: 20010207
  5. ATORVASTATIN CALCIUM [Concomitant]
  6. HEPARIN [Concomitant]
  7. ZANTAC [Concomitant]
  8. VITAMIN E [Concomitant]
  9. LEVOFLOXACIN [Concomitant]
  10. HALDOL [Concomitant]
  11. TERAZOSIN HCL [Concomitant]
  12. DIPHENHYDRAMINE HCL [Concomitant]
  13. METOPROLOL [Concomitant]

REACTIONS (13)
  - AGGRESSION [None]
  - ANGINA UNSTABLE [None]
  - CEREBRAL ATROPHY [None]
  - COMPUTERISED TOMOGRAM ABNORMAL [None]
  - DISORIENTATION [None]
  - DRUG INEFFECTIVE [None]
  - GASTROINTESTINAL HAEMORRHAGE [None]
  - HAEMATOCRIT DECREASED [None]
  - LEUKOPENIA [None]
  - MYOCARDIAL INFARCTION [None]
  - PHARYNGOLARYNGEAL PAIN [None]
  - PLATELET COUNT DECREASED [None]
  - SINUS DISORDER [None]
